FAERS Safety Report 22890143 (Version 5)
Quarter: 2023Q4

REPORT INFORMATION
  Report Type: Spontaneous
  Country: US (occurrence: US)
  Receive Date: 20230831
  Receipt Date: 20231221
  Transmission Date: 20240110
  Serious: Yes (Other)
  Sender: FDA-Public Use
  Company Number: US-Blueprint Medicines Corporation-SP-US-2023-001319

PATIENT
  Age: 43 Year
  Sex: Female
  Weight: 113.5 kg

DRUGS (5)
  1. AYVAKIT [Suspect]
     Active Substance: AVAPRITINIB
     Indication: Systemic mastocytosis
     Route: 065
     Dates: start: 20230818, end: 20230820
  2. AYVAKIT [Suspect]
     Active Substance: AVAPRITINIB
     Indication: Indolent systemic mastocytosis
     Route: 048
     Dates: start: 20230817, end: 20231009
  3. AYVAKIT [Suspect]
     Active Substance: AVAPRITINIB
     Route: 065
     Dates: start: 202308, end: 202309
  4. MUCINEX [Concomitant]
     Active Substance: GUAIFENESIN
     Indication: Product used for unknown indication
     Route: 065
  5. ZYRTEC [Concomitant]
     Active Substance: CETIRIZINE HYDROCHLORIDE
     Indication: Product used for unknown indication
     Route: 065

REACTIONS (31)
  - Pain [Recovered/Resolved]
  - Arthralgia [Recovered/Resolved]
  - Retching [Unknown]
  - Myalgia [Unknown]
  - Hot flush [Recovered/Resolved]
  - Temperature intolerance [Recovered/Resolved]
  - Muscle spasms [Unknown]
  - Drug intolerance [Unknown]
  - Adverse drug reaction [Unknown]
  - Sensitive skin [Unknown]
  - Pyrexia [Unknown]
  - Diarrhoea [Recovered/Resolved]
  - Nausea [Not Recovered/Not Resolved]
  - Peripheral swelling [Not Recovered/Not Resolved]
  - Pain in extremity [Not Recovered/Not Resolved]
  - Abdominal pain [Recovered/Resolved]
  - Liver disorder [Unknown]
  - Spleen disorder [Unknown]
  - Hepatosplenomegaly [Recovered/Resolved]
  - Nodule [Not Recovered/Not Resolved]
  - Skin lesion [Not Recovered/Not Resolved]
  - Vitamin D decreased [Recovered/Resolved]
  - Vitamin B12 decreased [Recovered/Resolved]
  - Ear infection [Unknown]
  - Sinusitis [Unknown]
  - Illness [Recovered/Resolved]
  - Bone pain [Recovered/Resolved]
  - Abdominal pain upper [Recovered/Resolved]
  - Food intolerance [Recovered/Resolved]
  - Wrong technique in product usage process [Unknown]
  - Intentional dose omission [Unknown]

NARRATIVE: CASE EVENT DATE: 20230818
